FAERS Safety Report 4572984-2 (Version None)
Quarter: 2005Q1

REPORT INFORMATION
  Report Type: 
  Country: None (occurrence: None)
  Receive Date: 20050203
  Receipt Date: 20050119
  Transmission Date: 20050727
  Serious: Yes (Hospitalization, Other)
  Sender: FDA-Public Use
  Company Number: 211479

PATIENT
  Age: 28 Year
  Sex: Female

DRUGS (4)
  1. MABTHERA (RITUXIMAB) CONC FOR SOLUTION FOR INFUSION [Suspect]
     Indication: SYSTEMIC LUPUS ERYTHEMATOSUS
     Dosage: INTRAVENOUS
     Route: 042
  2. ANTIVITAMIN K (ANTIVITAMIN K) [Concomitant]
  3. LIORESAL [Concomitant]
  4. PREDNISONE TAB [Concomitant]

REACTIONS (4)
  - HEADACHE [None]
  - MENINGEAL DISORDER [None]
  - NAUSEA [None]
  - VOMITING [None]
